FAERS Safety Report 7334887-X (Version None)
Quarter: 2011Q1

REPORT INFORMATION
  Report Type: 
  Country: None (occurrence: None)
  Receive Date: 20110302
  Receipt Date: 20110302
  Transmission Date: 20110831
  Serious: Yes (Hospitalization)
  Sender: FDA-Public Use
  Company Number: None

PATIENT
  Sex: Female
  Weight: 55.9 kg

DRUGS (8)
  1. TIMOPTIC [Concomitant]
  2. RECLAST [Concomitant]
  3. OMEPRAZOLE [Concomitant]
  4. AVASTIN [Suspect]
     Indication: NON-SMALL CELL LUNG CANCER
     Dosage: 15MG D-14 + D1 Q21 D
     Dates: start: 20110203, end: 20110216
  5. ABRAXANE [Suspect]
     Indication: NON-SMALL CELL LUNG CANCER
     Dosage: 100 MG D1, 8 + 15
     Dates: start: 20110226
  6. CALCIUM + D [Concomitant]
  7. RESTASIS [Concomitant]
  8. CARBOPLATIN [Concomitant]
     Indication: NON-SMALL CELL LUNG CANCER
     Dosage: AUC-6 D1 EVERY 21 DAYS
     Dates: start: 20110216, end: 20110216

REACTIONS (3)
  - HYPERSENSITIVITY [None]
  - ANGIOEDEMA [None]
  - DYSPHAGIA [None]
